FAERS Safety Report 15090305 (Version 1)
Quarter: 2018Q2

REPORT INFORMATION
  Report Type: Report from Study
  Country: US (occurrence: US)
  Receive Date: 20180629
  Receipt Date: 20180629
  Transmission Date: 20180711
  Serious: Yes (Other)
  Sender: FDA-Public Use
  Company Number: US-MYLANLABS-2018M1045145

PATIENT
  Age: 67 Year
  Sex: Female

DRUGS (1)
  1. GLATIRAMER ACETATE INJECTION [Suspect]
     Active Substance: GLATIRAMER ACETATE
     Indication: RELAPSING-REMITTING MULTIPLE SCLEROSIS
     Dosage: 40 MG, 3XW (3 TIMES WEEK )
     Route: 058
     Dates: start: 201710

REACTIONS (4)
  - Dysgraphia [Unknown]
  - Knee arthroplasty [Unknown]
  - Tremor [Unknown]
  - Joint range of motion decreased [Unknown]
